FAERS Safety Report 22358486 (Version 1)
Quarter: 2023Q2

REPORT INFORMATION
  Report Type: Spontaneous
  Country: US (occurrence: None)
  Receive Date: 20230524
  Receipt Date: 20230524
  Transmission Date: 20230722
  Serious: Yes (Other)
  Sender: FDA-Public Use
  Company Number: US-INFO-20230083

PATIENT
  Age: 5 Decade
  Sex: Female

DRUGS (4)
  1. CIPROFLOXACIN [Interacting]
     Active Substance: CIPROFLOXACIN
     Indication: Incision site cellulitis
     Dosage: ()
  2. FENTANYL [Interacting]
     Active Substance: FENTANYL
     Indication: Pain management
     Dosage: (37UG/H)
     Route: 062
  3. FENTANYL [Interacting]
     Active Substance: FENTANYL
     Indication: Pain management
     Dosage: (50UG/H)
     Route: 062
  4. HYDROMORPHONE [Concomitant]
     Active Substance: HYDROMORPHONE
     Indication: Breakthrough pain
     Dosage: 1-2 DOSES OF HYDROMORPHONE DAILY

REACTIONS (5)
  - Fatigue [Recovered/Resolved]
  - Somnolence [Recovered/Resolved]
  - Myoclonus [Recovered/Resolved]
  - Confusional state [Recovered/Resolved]
  - Drug interaction [Recovered/Resolved]
